FAERS Safety Report 18776743 (Version 3)
Quarter: 2021Q1

REPORT INFORMATION
  Report Type: Spontaneous
  Country: US (occurrence: US)
  Receive Date: 20210122
  Receipt Date: 20210222
  Transmission Date: 20210419
  Serious: No
  Sender: FDA-Public Use
  Company Number: US-GLAXOSMITHKLINE-US2021008385

PATIENT
  Sex: Female

DRUGS (1)
  1. FLOVENT HFA [Suspect]
     Active Substance: FLUTICASONE PROPIONATE
     Indication: CHRONIC OBSTRUCTIVE PULMONARY DISEASE
     Dosage: 2 PUFF(S), BID
     Route: 055
     Dates: end: 202012

REACTIONS (5)
  - Rash [Recovered/Resolved]
  - Swollen tongue [Unknown]
  - Oropharyngeal pain [Unknown]
  - Product complaint [Unknown]
  - Tongue ulceration [Recovered/Resolved]
